FAERS Safety Report 9097569 (Version 7)
Quarter: 2013Q3

REPORT INFORMATION
  Report Type: Report from Study
  Country: IN (occurrence: IN)
  Receive Date: 20130212
  Receipt Date: 20130712
  Transmission Date: 20140515
  Serious: Yes (Hospitalization)
  Sender: FDA-Public Use
  Company Number: IN-ROCHE-1185683

PATIENT
  Age: 57 Year
  Sex: Female
  Weight: 71.2 kg

DRUGS (14)
  1. TOCILIZUMAB [Suspect]
     Indication: RHEUMATOID ARTHRITIS
     Dosage: DATE OF MOST RECENT DOSE 8 MG/KG OF TOCILIZUMAB ON 03/JAN/2013
     Route: 042
     Dates: start: 20130103
  2. METHOTREXATE [Concomitant]
     Indication: RHEUMATOID ARTHRITIS
     Route: 030
     Dates: start: 20120726, end: 20130305
  3. DEFLAZACORT [Concomitant]
     Indication: RHEUMATOID ARTHRITIS
     Route: 048
     Dates: start: 20120827, end: 20130508
  4. SULFASALAZINE [Concomitant]
     Indication: RHEUMATOID ARTHRITIS
     Route: 048
     Dates: start: 20121026, end: 20130508
  5. LORNOXICAM [Concomitant]
     Indication: RHEUMATOID ARTHRITIS
     Route: 048
     Dates: start: 20121002, end: 20130305
  6. NOVONORM [Concomitant]
     Indication: DIABETES MELLITUS
     Route: 048
     Dates: start: 2007
  7. GLICLAZIDE [Concomitant]
     Indication: DIABETES MELLITUS
     Route: 048
     Dates: start: 2007
  8. METFORMIN HYDROCHLORIDE [Concomitant]
     Indication: DIABETES MELLITUS
     Route: 048
     Dates: start: 2007
  9. HYDROXYCHLOROQUINE SULPHATE [Concomitant]
     Indication: RHEUMATOID ARTHRITIS
     Route: 048
     Dates: start: 20121026
  10. FOLITRAX [Concomitant]
     Indication: RHEUMATOID ARTHRITIS
     Route: 048
  11. FOLITRAX [Concomitant]
     Route: 065
     Dates: start: 20130509
  12. NAPROSYN [Concomitant]
     Indication: RHEUMATOID ARTHRITIS
     Dosage: PRN(AS NEEDED)
     Route: 048
     Dates: start: 20130306
  13. LIVOGEN (INDIA) [Concomitant]
     Indication: RHEUMATOID ARTHRITIS
     Dosage: 1 TABLET
     Route: 048
     Dates: start: 20130509
  14. PANTOPRAZOL [Concomitant]
     Indication: RHEUMATOID ARTHRITIS
     Route: 048
     Dates: start: 20130509

REACTIONS (1)
  - Cardiac failure [Recovered/Resolved with Sequelae]
